FAERS Safety Report 16826320 (Version 1)
Quarter: 2019Q3

REPORT INFORMATION
  Report Type: Spontaneous
  Country: US (occurrence: US)
  Receive Date: 20190919
  Receipt Date: 20190919
  Transmission Date: 20191005
  Serious: Yes (Death, Life-Threatening, Hospitalization, Other)
  Sender: FDA-Public Use
  Company Number: US-CLOVIS ONCOLOGY-CLO-2019-001858

PATIENT
  Sex: Female

DRUGS (1)
  1. RUBRACA [Suspect]
     Active Substance: RUCAPARIB CAMSYLATE
     Indication: OVARIAN CANCER RECURRENT
     Dosage: 2 PILLS EVERY MORNING AND 2 PILLS / UNKNOWN STRENGHT
     Route: 048
     Dates: start: 2019, end: 2019

REACTIONS (6)
  - Aortic stenosis [Unknown]
  - Fluid retention [Unknown]
  - Asthenia [Unknown]
  - Hypotension [Unknown]
  - Blood count abnormal [Unknown]
  - Acute kidney injury [Fatal]

NARRATIVE: CASE EVENT DATE: 2019
